FAERS Safety Report 8722739 (Version 2)
Quarter: 2015Q2

REPORT INFORMATION
  Report Type: Report from Study
  Country: US (occurrence: US)
  Receive Date: 20120814
  Receipt Date: 20150401
  Transmission Date: 20150821
  Serious: Yes (Death)
  Sender: FDA-Public Use
  Company Number: US-ROCHE-1100901

PATIENT
  Sex: Male

DRUGS (6)
  1. HEPARIN [Concomitant]
     Active Substance: HEPARIN SODIUM
     Route: 040
     Dates: start: 19960717
  2. ACTIVASE [Suspect]
     Active Substance: ALTEPLASE
     Route: 065
  3. ACTIVASE [Suspect]
     Active Substance: ALTEPLASE
     Route: 040
     Dates: start: 19960717, end: 19960717
  4. HEPARIN [Concomitant]
     Active Substance: HEPARIN SODIUM
     Route: 040
  5. ACTIVASE [Suspect]
     Active Substance: ALTEPLASE
     Indication: ACUTE MYOCARDIAL INFARCTION
     Route: 040
     Dates: start: 19960717
  6. ACTIVASE [Suspect]
     Active Substance: ALTEPLASE
     Route: 040
     Dates: start: 19960717, end: 19960717

REACTIONS (1)
  - Death [Fatal]
